FAERS Safety Report 8612533-2 (Version None)
Quarter: 2012Q3

REPORT INFORMATION
  Report Type: 
  Country: None (occurrence: None)
  Receive Date: 20120822
  Receipt Date: 20111202
  Transmission Date: 20120928
  Serious: No
  Sender: FDA-Public Use
  Company Number: US-ASTRAZENECA-2011SE59954

PATIENT
  Age: 60 Year
  Sex: Female
  Weight: 53.1 kg

DRUGS (28)
  1. SYMBICORT [Suspect]
     Dosage: 160/4.5MCG 1 PUFF TWICE A DAY
     Route: 055
  2. OBAMIAN IV [Concomitant]
     Route: 042
  3. SYMBICORT [Suspect]
     Dosage: 160/4.5MCG 2 PUFFS TWICE A DAY
     Route: 055
  4. NEXIUM [Concomitant]
     Indication: HYPERCHLORHYDRIA
     Route: 048
  5. METOPROLOL TARTRATE [Concomitant]
     Route: 048
  6. CALCIUM [Concomitant]
  7. GABAPENTIN [Concomitant]
  8. SYMBICORT [Suspect]
     Indication: CHRONIC OBSTRUCTIVE PULMONARY DISEASE
     Dosage: 160/4.5MCG, UNKNOWN
     Route: 055
  9. SYMBICORT [Suspect]
     Indication: ASTHMA
     Dosage: 160/4.5MCG, UNKNOWN
     Route: 055
  10. ALBUTEROL [Concomitant]
  11. NAPROXEN [Concomitant]
     Indication: MYALGIA
  12. VOLTAREN [Concomitant]
  13. BENADRYL [Concomitant]
  14. SYMBICORT [Suspect]
     Dosage: 160/4.5MCG 1 PUFF TWICE A DAY
     Route: 055
  15. DILAUDID [Concomitant]
  16. SYMBICORT [Suspect]
     Dosage: 160/4.5MCG 2 PUFFS TWICE A DAY
     Route: 055
  17. SYMBICORT [Suspect]
     Dosage: 160/4.5MCG 1 PUFF TWICE A DAY
     Route: 055
  18. LEVAGLIN IV [Concomitant]
     Route: 042
  19. SYMBICORT [Suspect]
     Dosage: 160/4.5MCG 2 PUFFS TWICE A DAY
     Route: 055
  20. PROPOFOL [Concomitant]
  21. CORTISONE ACETATE [Suspect]
     Route: 065
  22. ORPIEAL [Concomitant]
  23. SYMBICORT [Suspect]
     Indication: EMPHYSEMA
     Dosage: 160/4.5MCG, UNKNOWN
     Route: 055
  24. PLAVIX [Concomitant]
  25. LEVOTHYROXINE SODIUM [Concomitant]
  26. RELEPAN [Concomitant]
  27. LODINE [Concomitant]
  28. OXYGEN [Concomitant]
     Dosage: AT NIGHT

REACTIONS (7)
  - SWELLING FACE [None]
  - UNDERDOSE [None]
  - INCORRECT DOSE ADMINISTERED [None]
  - MYALGIA [None]
  - CIRCUMSTANCE OR INFORMATION CAPABLE OF LEADING TO MEDICATION ERROR [None]
  - HEARING IMPAIRED [None]
  - HYPERCHLORHYDRIA [None]
